FAERS Safety Report 12212192 (Version 1)
Quarter: 2016Q1

REPORT INFORMATION
  Report Type: Spontaneous
  Country: US (occurrence: US)
  Receive Date: 20160325
  Receipt Date: 20160325
  Transmission Date: 20160526
  Serious: No
  Sender: FDA-Public Use
  Company Number: US-ASTRAZENECA-2016SE22174

PATIENT
  Sex: Female

DRUGS (2)
  1. MOVANTIK [Suspect]
     Active Substance: NALOXEGOL OXALATE
     Indication: FLATULENCE
     Route: 048
     Dates: start: 20160226
  2. FENTANYL. [Concomitant]
     Active Substance: FENTANYL
     Dates: start: 201602

REACTIONS (3)
  - Pain [Unknown]
  - Flatulence [Unknown]
  - Speech disorder [Unknown]

NARRATIVE: CASE EVENT DATE: 201602
